FAERS Safety Report 6099869-7 (Version None)
Quarter: 2009Q1

REPORT INFORMATION
  Report Type: 
  Country: None (occurrence: None)
  Receive Date: 20090303
  Receipt Date: 20090226
  Transmission Date: 20090719
  Serious: Yes (Hospitalization, Other)
  Sender: FDA-Public Use
  Company Number: PHHY2009FR04537

PATIENT
  Age: 60 Year
  Sex: Female
  Weight: 56 kg

DRUGS (5)
  1. ACLASTA [Suspect]
     Indication: OSTEOPOROSIS
     Dosage: 5 MG
     Route: 042
     Dates: start: 20090204
  2. AERIUS [Concomitant]
  3. EUPANTOL [Concomitant]
  4. ESTREVA [Concomitant]
     Dosage: 1 DOSE DAILY
  5. UTROGESTAN [Concomitant]
     Dosage: UNK
     Dates: start: 20090103

REACTIONS (15)
  - ABASIA [None]
  - ARTHRALGIA [None]
  - BACK PAIN [None]
  - CHILLS [None]
  - DEPRESSION [None]
  - FATIGUE [None]
  - FEELING ABNORMAL [None]
  - HYPERSENSITIVITY [None]
  - INJECTION SITE EXTRAVASATION [None]
  - INJECTION SITE INJURY [None]
  - OSTEOARTHRITIS [None]
  - PAIN [None]
  - PAIN IN EXTREMITY [None]
  - PARALYSIS [None]
  - TETANY [None]
